FAERS Safety Report 18694533 (Version 1)
Quarter: 2021Q1

REPORT INFORMATION
  Report Type: Spontaneous
  Country: NL (occurrence: NL)
  Receive Date: 20210104
  Receipt Date: 20210104
  Transmission Date: 20210419
  Serious: Yes (Hospitalization)
  Sender: FDA-Public Use
  Company Number: NL-MYLANLABS-2020M1106249

PATIENT
  Age: 4 Week
  Sex: Male

DRUGS (2)
  1. CITALOPRAM [Suspect]
     Active Substance: CITALOPRAM HYDROBROMIDE
     Indication: PRODUCT USED FOR UNKNOWN INDICATION
     Dosage: 20 MILLIGRAMTHE MOTHER GAVE HIM 10 DROPS...
     Route: 048
  2. COLECALCIFEROL [Suspect]
     Active Substance: CHOLECALCIFEROL
     Indication: PRODUCT USED FOR UNKNOWN INDICATION
     Dosage: THE MOTHER GAVE HIM 10 DROPS...
     Route: 048

REACTIONS (10)
  - Systolic hypertension [Recovered/Resolved]
  - Opisthotonus [Recovered/Resolved]
  - Sinus tachycardia [Recovered/Resolved]
  - Feeling jittery [Recovered/Resolved]
  - Wrong product administered [Recovered/Resolved]
  - Toxicity to various agents [Recovered/Resolved]
  - Agitation [Recovered/Resolved]
  - Product packaging confusion [Unknown]
  - Gastrooesophageal reflux disease [Recovered/Resolved]
  - Accidental overdose [Recovered/Resolved]
